FAERS Safety Report 23840713 (Version 2)
Quarter: 2024Q4

REPORT INFORMATION
  Report Type: Spontaneous
  Country: CA (occurrence: CA)
  Receive Date: 20240510
  Receipt Date: 20241023
  Transmission Date: 20250114
  Serious: Yes (Death)
  Sender: ACCORD
  Company Number: None

PATIENT
  Age: 67 Year
  Sex: Female
  Weight: 57 kg

DRUGS (1)
  1. CAPECITABINE [Suspect]
     Active Substance: CAPECITABINE
     Indication: Chemotherapy
     Dosage: 2 EVERY 1 DAYS
     Route: 048

REACTIONS (4)
  - Diarrhoea [Fatal]
  - Hypotension [Fatal]
  - Malaise [Fatal]
  - Mucosal inflammation [Fatal]
